FAERS Safety Report 11224292 (Version 1)
Quarter: 2015Q2

REPORT INFORMATION
  Report Type: Spontaneous
  Country: CA (occurrence: CA)
  Receive Date: 20150629
  Receipt Date: 20150629
  Transmission Date: 20150821
  Serious: Yes (Hospitalization, Other)
  Sender: FDA-Public Use
  Company Number: CA-ABBVIE-15K-028-1414616-00

PATIENT
  Sex: Male

DRUGS (5)
  1. PLAQUENIL [Concomitant]
     Active Substance: HYDROXYCHLOROQUINE SULFATE
     Indication: RHEUMATOID ARTHRITIS
     Dates: start: 2006, end: 2011
  2. METHOTREXATE [Concomitant]
     Active Substance: METHOTREXATE
     Route: 058
     Dates: start: 201308
  3. SULFASALAZINE. [Concomitant]
     Active Substance: SULFASALAZINE
     Indication: RHEUMATOID ARTHRITIS
     Dates: start: 2007, end: 200804
  4. HUMIRA [Suspect]
     Active Substance: ADALIMUMAB
     Indication: RHEUMATOID ARTHRITIS
     Route: 058
     Dates: start: 200611
  5. METHOTREXATE [Concomitant]
     Active Substance: METHOTREXATE
     Indication: RHEUMATOID ARTHRITIS
     Route: 058
     Dates: start: 2006, end: 201012

REACTIONS (12)
  - Diverticulitis [Unknown]
  - Type 2 diabetes mellitus [Not Recovered/Not Resolved]
  - Abscess [Unknown]
  - Knee arthroplasty [Unknown]
  - Arthritis bacterial [Unknown]
  - Osteoarthritis [Not Recovered/Not Resolved]
  - Bladder transitional cell carcinoma [Unknown]
  - Osteoporosis [Not Recovered/Not Resolved]
  - Tachycardia [Unknown]
  - Hypertension [Not Recovered/Not Resolved]
  - Nephrolithiasis [Not Recovered/Not Resolved]
  - Nausea [Unknown]

NARRATIVE: CASE EVENT DATE: 2008
